FAERS Safety Report 15396288 (Version 2)
Quarter: 2018Q4

REPORT INFORMATION
  Report Type: Spontaneous
  Country: JP (occurrence: JP)
  Receive Date: 20180918
  Receipt Date: 20181218
  Transmission Date: 20190204
  Serious: Yes (Other)
  Sender: FDA-Public Use
  Company Number: JP-PFIZER INC-2018368720

PATIENT
  Age: 3 Decade
  Sex: Male

DRUGS (1)
  1. METHOTREXATE SODIUM. [Suspect]
     Active Substance: METHOTREXATE SODIUM
     Indication: ACUTE LYMPHOCYTIC LEUKAEMIA
     Dosage: UNK (HIGH-DOSE)

REACTIONS (7)
  - Nausea [Recovering/Resolving]
  - Malaise [Recovering/Resolving]
  - Oedema [Recovering/Resolving]
  - Acute kidney injury [Recovering/Resolving]
  - Oral disorder [Recovering/Resolving]
  - Drug clearance decreased [Recovering/Resolving]
  - Diarrhoea [Recovering/Resolving]
